FAERS Safety Report 15098125 (Version 1)
Quarter: 2018Q3

REPORT INFORMATION
  Report Type: Spontaneous
  Country: AU (occurrence: AU)
  Receive Date: 20180702
  Receipt Date: 20180702
  Transmission Date: 20181010
  Serious: Yes (Hospitalization, Other)
  Sender: FDA-Public Use
  Company Number: AU-ALEXION PHARMACEUTICALS INC.-A201808077

PATIENT
  Age: 32 Year
  Sex: Female

DRUGS (1)
  1. SOLIRIS [Suspect]
     Active Substance: ECULIZUMAB
     Indication: ATYPICAL HAEMOLYTIC URAEMIC SYNDROME
     Dosage: 900 MG, QW
     Route: 065
     Dates: start: 20170814

REACTIONS (10)
  - Urine protein/creatinine ratio increased [Unknown]
  - Haemoglobin decreased [Unknown]
  - Blood creatinine decreased [Unknown]
  - Blood urea increased [Unknown]
  - Streptococcal bacteraemia [Unknown]
  - Abdominal pain upper [Unknown]
  - Fatigue [Unknown]
  - White blood cell count increased [Unknown]
  - Maternal exposure during breast feeding [Unknown]
  - Pyrexia [Recovered/Resolved]

NARRATIVE: CASE EVENT DATE: 20170825
